APPROVED DRUG PRODUCT: DEFERIPRONE
Active Ingredient: DEFERIPRONE
Strength: 1GM
Dosage Form/Route: TABLET;ORAL
Application: A208800 | Product #002 | TE Code: AB
Applicant: TARO PHARMACEUTICAL INDUSTRIES LTD
Approved: Nov 22, 2023 | RLD: No | RS: No | Type: RX